FAERS Safety Report 12972379 (Version 1)
Quarter: 2016Q4

REPORT INFORMATION
  Report Type: Report from Study
  Country: US (occurrence: US)
  Receive Date: 20161124
  Receipt Date: 20161124
  Transmission Date: 20170207
  Serious: No
  Sender: FDA-Public Use
  Company Number: US-PROSTRAKAN-2016-US-0244

PATIENT

DRUGS (1)
  1. GRANISETRON [Suspect]
     Active Substance: GRANISETRON
     Indication: PROPHYLAXIS OF NAUSEA AND VOMITING
     Dosage: APPLY ONE PATCH FOR 5 TO 7 DAY
     Route: 062
     Dates: start: 20160427, end: 20160504

REACTIONS (5)
  - Nausea [Unknown]
  - Product adhesion issue [Unknown]
  - Dermal absorption impaired [Unknown]
  - Wrong technique in product usage process [Unknown]
  - Inappropriate schedule of drug administration [Unknown]

NARRATIVE: CASE EVENT DATE: 20160427
